FAERS Safety Report 6812065-8 (Version None)
Quarter: 2010Q2

REPORT INFORMATION
  Report Type: 
  Country: None (occurrence: None)
  Receive Date: 20100628
  Receipt Date: 20100609
  Transmission Date: 20101027
  Serious: Yes (Life-Threatening, Hospitalization)
  Sender: FDA-Public Use
  Company Number: CV20100300

PATIENT
  Age: 47 Year
  Sex: Female

DRUGS (14)
  1. PROPOFOL [Suspect]
     Indication: INDUCTION OF ANAESTHESIA
     Route: 042
     Dates: start: 20100429
  2. SUFENTA (SUFENTANIL CITRATE) (SUFENTANIL CITRATE) [Concomitant]
  3. ATRACURIUM (ATRACURIUM) (ATRACURIUM) [Concomitant]
  4. KETAMIN (KETAMINE HYDROCHLORIDE) (KETAMINE HYDROCHLORIDE) [Concomitant]
  5. SUPRANE [Concomitant]
  6. NORAPEINE (ROPIVACAINE HYDROCHLORIDE) (ROPIVACINE HYDROCHLORIDE) [Concomitant]
  7. NEURONTIN [Concomitant]
  8. BETADIN (POVIDONE-IODINE) (PROVIDONE-IODINE) [Concomitant]
  9. NORMACOL (NORMACOL) (NORMACOL) [Concomitant]
  10. LOVENOX (HEPARIN-FRACTION, SODIUM SALT) (HEPARIN-FRACTION, SODIUM SALT [Concomitant]
  11. PERFALGAN (PARACETAMOL) (PRACETAMOL) [Concomitant]
  12. ACUPAN (NEFOPAM HYDROCHLORIDE) (NEUFOPAM HYDROCHLORIDE) [Concomitant]
  13. MORPHIN LAVOISIER (MORPHINE) (MORPHINE) [Concomitant]
  14. EPHEDRINE (EPHEDRINE) EPHEDRINE) [Concomitant]

REACTIONS (2)
  - ACUTE PULMONARY OEDEMA [None]
  - RENAL FAILURE ACUTE [None]
